FAERS Safety Report 16067513 (Version 3)
Quarter: 2019Q3

REPORT INFORMATION
  Report Type: Report from Study
  Country: US (occurrence: US)
  Receive Date: 20190313
  Receipt Date: 20190824
  Transmission Date: 20191004
  Serious: Yes (Other)
  Sender: FDA-Public Use
  Company Number: PHEH2019US010578

PATIENT
  Sex: Female

DRUGS (1)
  1. GILENYA [Suspect]
     Active Substance: FINGOLIMOD HYDROCHLORIDE
     Indication: MULTIPLE SCLEROSIS
     Dosage: 0.5 MG, QD
     Route: 048
     Dates: start: 20190209

REACTIONS (8)
  - Fatigue [Unknown]
  - Seizure [Unknown]
  - Tooth disorder [Unknown]
  - Depression [Unknown]
  - Headache [Recovered/Resolved]
  - Suicidal ideation [Unknown]
  - Pain [Unknown]
  - Myocardial infarction [Unknown]
